FAERS Safety Report 6928473-0 (Version None)
Quarter: 2010Q3

REPORT INFORMATION
  Report Type: 
  Country: None (occurrence: None)
  Receive Date: 20100812
  Receipt Date: 20100728
  Transmission Date: 20110219
  Serious: Yes (Death, Congenital Anomaly)
  Sender: FDA-Public Use
  Company Number: AUR-APU-2010-01841

PATIENT
  Age: 39 Week
  Sex: Female
  Weight: 3.41 kg

DRUGS (4)
  1. ZIDOVUDINE [Suspect]
     Dosage: TRANSPLACENTAL
     Route: 064
     Dates: start: 20090318
  2. RITONAVIR [Suspect]
     Dosage: TRANSPLACENTAL
     Route: 064
     Dates: start: 20090310
  3. RALTEGRAVIR [Suspect]
     Dosage: 800MG, QD, TRANSPLACENTAL
     Route: 064
     Dates: start: 20090319
  4. DARUNAVIR [Suspect]
     Dosage: 1200MG, QD, TRANSPLACENTAL
     Route: 064
     Dates: start: 20090310

REACTIONS (9)
  - CAESAREAN SECTION [None]
  - CARDIAC ARREST NEONATAL [None]
  - CARDIAC MURMUR [None]
  - CONGENITAL HEART VALVE DISORDER [None]
  - CONGENITAL PULMONARY VALVE DISORDER [None]
  - INFANTILE APNOEIC ATTACK [None]
  - MATERNAL DRUGS AFFECTING FOETUS [None]
  - SUDDEN INFANT DEATH SYNDROME [None]
  - VENTRICULAR HYPERTROPHY [None]
